FAERS Safety Report 17695827 (Version 1)
Quarter: 2020Q2

REPORT INFORMATION
  Report Type: Report from Study
  Country: US (occurrence: US)
  Receive Date: 20200422
  Receipt Date: 20200422
  Transmission Date: 20200714
  Serious: Yes (Death, Other)
  Sender: FDA-Public Use
  Company Number: US-AUROBINDO-AUR-APL-2020-019021

PATIENT

DRUGS (4)
  1. MELPHALAN. [Suspect]
     Active Substance: MELPHALAN
     Indication: NEUROBLASTOMA
     Dosage: UNK
     Route: 065
  2. BUSULFAN. [Suspect]
     Active Substance: BUSULFAN
     Indication: BONE MARROW CONDITIONING REGIMEN
  3. MELPHALAN. [Suspect]
     Active Substance: MELPHALAN
     Indication: BONE MARROW CONDITIONING REGIMEN
  4. BUSULFAN. [Suspect]
     Active Substance: BUSULFAN
     Indication: NEUROBLASTOMA
     Dosage: UNK
     Route: 042

REACTIONS (2)
  - Infection [Fatal]
  - Hepatic vein occlusion [Fatal]
